FAERS Safety Report 9733671 (Version 1)
Quarter: 2013Q4

REPORT INFORMATION
  Report Type: Report from Study
  Country: DE (occurrence: DE)
  Receive Date: 20131205
  Receipt Date: 20131205
  Transmission Date: 20140711
  Serious: Yes (Hospitalization)
  Sender: FDA-Public Use
  Company Number: DE-ABBVIE-13P-062-1174601-00

PATIENT
  Age: 47 Year
  Sex: Female
  Weight: 80 kg

DRUGS (12)
  1. HUMIRA [Suspect]
     Indication: CROHN^S DISEASE
     Dates: start: 2011, end: 201303
  2. DECORTIN [Concomitant]
     Indication: PRODUCT USED FOR UNKNOWN INDICATION
  3. PANTOPRAZOL [Concomitant]
     Indication: PRODUCT USED FOR UNKNOWN INDICATION
  4. MUCOFALK [Concomitant]
     Indication: PRODUCT USED FOR UNKNOWN INDICATION
  5. BELOC ZOK [Concomitant]
     Indication: PRODUCT USED FOR UNKNOWN INDICATION
  6. ALLOPURINOL [Concomitant]
     Indication: PRODUCT USED FOR UNKNOWN INDICATION
  7. BEZAFIBRAT [Concomitant]
     Indication: PRODUCT USED FOR UNKNOWN INDICATION
  8. OPIPRAMOL [Concomitant]
     Indication: PRODUCT USED FOR UNKNOWN INDICATION
  9. OPIPRAMOL [Concomitant]
  10. DEKRISTOL [Concomitant]
     Indication: PRODUCT USED FOR UNKNOWN INDICATION
  11. LEVODOPA [Concomitant]
     Indication: PRODUCT USED FOR UNKNOWN INDICATION
  12. NOVALGIN [Concomitant]
     Indication: PRODUCT USED FOR UNKNOWN INDICATION

REACTIONS (9)
  - Post procedural complication [Recovered/Resolved]
  - Pancreatitis [Recovered/Resolved]
  - Bile duct stone [Recovered/Resolved]
  - Hyperchromic anaemia [Unknown]
  - Hepatitis [Not Recovered/Not Resolved]
  - Hepatic steatosis [Not Recovered/Not Resolved]
  - Renal cyst [Unknown]
  - Abdominal pain upper [Unknown]
  - Nausea [Unknown]
